FAERS Safety Report 8616116-X (Version None)
Quarter: 2012Q3

REPORT INFORMATION
  Report Type: 
  Country: None (occurrence: None)
  Receive Date: 20120823
  Receipt Date: 20120815
  Transmission Date: 20120928
  Serious: Yes (Disabling, Other)
  Sender: FDA-Public Use
  Company Number: US-009507513-1207USA00064

PATIENT

DRUGS (7)
  1. FOSAMAX [Suspect]
     Indication: OSTEOPENIA
     Dosage: 10 MG, QD
     Route: 048
     Dates: start: 19900101, end: 20101101
  2. CALCIUM (UNSPECIFIED) [Concomitant]
     Indication: CALCIUM DEFICIENCY
  3. DILTIAZEM HCL [Concomitant]
     Indication: HYPERTENSION
  4. FOSAMAX [Suspect]
     Indication: OSTEOPOROSIS
  5. VITAMINS (UNSPECIFIED) [Concomitant]
  6. SIMVASTATIN [Concomitant]
     Indication: BLOOD CHOLESTEROL INCREASED
  7. LISINOPRIL [Concomitant]
     Indication: HYPERTENSION

REACTIONS (8)
  - GASTROOESOPHAGEAL REFLUX DISEASE [None]
  - DIABETES MELLITUS [None]
  - FEMUR FRACTURE [None]
  - OSTEOPOROSIS [None]
  - INTRAMEDULLARY ROD INSERTION [None]
  - BONE DENSITY DECREASED [None]
  - BREAST CANCER [None]
  - STRESS FRACTURE [None]
